FAERS Safety Report 12669946 (Version 1)
Quarter: 2016Q3

REPORT INFORMATION
  Report Type: Spontaneous
  Country: BR (occurrence: BR)
  Receive Date: 20160820
  Receipt Date: 20160820
  Transmission Date: 20161109
  Serious: Yes (Hospitalization, Other)
  Sender: FDA-Public Use
  Company Number: BR-ASTRAZENECA-2016SE88258

PATIENT
  Age: 70 Year
  Sex: Male

DRUGS (6)
  1. ASA [Concomitant]
     Active Substance: ASPIRIN
     Dates: start: 2011
  2. PANTOPRAZOLE [Concomitant]
     Active Substance: PANTOPRAZOLE SODIUM
     Indication: PROPHYLAXIS
     Dosage: DAILY
     Route: 048
     Dates: start: 2011
  3. SELOZOK [Suspect]
     Active Substance: METOPROLOL SUCCINATE
     Indication: CORONARY REVASCULARISATION
     Dosage: DAILY
     Route: 048
     Dates: start: 2011, end: 201608
  4. ARADOIS [Concomitant]
     Active Substance: LOSARTAN POTASSIUM
     Dosage: DAILY
     Route: 048
     Dates: start: 2015
  5. SELOZOK [Suspect]
     Active Substance: METOPROLOL SUCCINATE
     Indication: CORONARY REVASCULARISATION
     Dosage: TWO TIMES A DAY
     Route: 048
     Dates: start: 201608
  6. CRESTOR [Suspect]
     Active Substance: ROSUVASTATIN CALCIUM
     Indication: BLOOD CHOLESTEROL INCREASED
     Dosage: DAILY
     Route: 048
     Dates: start: 2011

REACTIONS (4)
  - Abdominal pain upper [Not Recovered/Not Resolved]
  - Coronary artery occlusion [Not Recovered/Not Resolved]
  - Off label use [Not Recovered/Not Resolved]
  - Intentional product misuse [Unknown]

NARRATIVE: CASE EVENT DATE: 2011
